FAERS Safety Report 7940002-1 (Version None)
Quarter: 2011Q4

REPORT INFORMATION
  Report Type: 
  Country: None (occurrence: None)
  Receive Date: 20111125
  Receipt Date: 20111122
  Transmission Date: 20120403
  Serious: No
  Sender: FDA-Public Use
  Company Number: US-PFIZER INC-2011286003

PATIENT
  Sex: Female
  Weight: 63.5 kg

DRUGS (4)
  1. LASIX [Concomitant]
     Indication: OEDEMA
     Dosage: UNK
  2. NIFEDIPINE [Suspect]
     Indication: CARDIAC DISORDER
     Dosage: 60 MG, 1X/DAY
     Route: 048
     Dates: start: 20070101
  3. METOPROLOL [Concomitant]
     Indication: CARDIAC DISORDER
     Dosage: 100 MG, UNK
  4. ENALAPRIL [Concomitant]
     Indication: HYPERTENSION
     Dosage: UNK

REACTIONS (1)
  - MEDICATION RESIDUE [None]
